FAERS Safety Report 15449417 (Version 4)
Quarter: 2018Q4

REPORT INFORMATION
  Report Type: Report from Study
  Country: None (occurrence: CA)
  Receive Date: 20181001
  Receipt Date: 20181102
  Transmission Date: 20190204
  Serious: Yes (Hospitalization, Other)
  Sender: FDA-Public Use
  Company Number: CA-ABBVIE-18K-028-2502067-00

PATIENT
  Age: 53 Year
  Sex: Male
  Weight: 132 kg

DRUGS (2)
  1. HUMIRA [Suspect]
     Active Substance: ADALIMUMAB
     Indication: COLITIS ULCERATIVE
     Route: 058
     Dates: start: 20180719, end: 20180821
  2. IMURAN [Concomitant]
     Active Substance: AZATHIOPRINE
     Indication: PRODUCT USED FOR UNKNOWN INDICATION
     Dates: end: 201808

REACTIONS (12)
  - Myocardial infarction [Recovering/Resolving]
  - Septic embolus [Unknown]
  - Graft infection [Unknown]
  - Cerebrovascular accident [Recovering/Resolving]
  - Graft complication [Recovering/Resolving]
  - Cardiac valve disease [Unknown]
  - Cardiac failure congestive [Not Recovered/Not Resolved]
  - Device related infection [Unknown]
  - Heart valve incompetence [Unknown]
  - Blood count abnormal [Unknown]
  - Cardiac aneurysm [Not Recovered/Not Resolved]
  - Endocarditis [Recovering/Resolving]

NARRATIVE: CASE EVENT DATE: 2018
